FAERS Safety Report 23317007 (Version 2)
Quarter: 2025Q2

REPORT INFORMATION
  Report Type: Spontaneous
  Country: US (occurrence: US)
  Receive Date: 20231219
  Receipt Date: 20250404
  Transmission Date: 20250717
  Serious: No
  Sender: ROCHE
  Company Number: US-ROCHE-3414864

PATIENT
  Age: 15 Year
  Sex: Male

DRUGS (3)
  1. HEMLIBRA [Suspect]
     Active Substance: EMICIZUMAB-KXWH
     Indication: Factor VIII deficiency
     Dosage: 105MG/0.7 ML
     Route: 058
     Dates: start: 201911
  2. HEMLIBRA [Suspect]
     Active Substance: EMICIZUMAB-KXWH
     Dosage: 150MG/ ML
     Route: 058
     Dates: start: 201911
  3. ELOCTATE [Concomitant]
     Active Substance: EFMOROCTOCOG ALFA

REACTIONS (2)
  - Haemorrhage [Unknown]
  - Skin laceration [Unknown]

NARRATIVE: CASE EVENT DATE: 20230701
